FAERS Safety Report 4422138-5 (Version None)
Quarter: 2004Q3

REPORT INFORMATION
  Report Type: 
  Country: None (occurrence: None)
  Receive Date: 20040806
  Receipt Date: 20040726
  Transmission Date: 20050211
  Serious: Yes (Hospitalization)
  Sender: FDA-Public Use
  Company Number: C04-C-115

PATIENT
  Age: 28 Year
  Sex: Female

DRUGS (9)
  1. CLOZAPINE [Suspect]
     Dosage: 400MG BID ORAL
     Route: 048
     Dates: start: 19990801
  2. LITHIUM CARBONATE [Suspect]
     Indication: BIPOLAR DISORDER
     Dosage: 300MG TID
     Dates: start: 19970101
  3. ZANTAC [Concomitant]
  4. HALOPERIDOL [Concomitant]
  5. HALOPERIDOL [Concomitant]
  6. GEODON [Concomitant]
  7. GEODON [Concomitant]
  8. ATIVAN [Concomitant]
  9. ATIVAN [Concomitant]

REACTIONS (1)
  - THERAPEUTIC AGENT TOXICITY [None]
